FAERS Safety Report 12126619 (Version 1)
Quarter: 2016Q1

REPORT INFORMATION
  Report Type: Spontaneous
  Country: US (occurrence: US)
  Receive Date: 20160229
  Receipt Date: 20160229
  Transmission Date: 20160526
  Serious: Yes (Death, Other)
  Sender: FDA-Public Use
  Company Number: US-BD RX INC-2016BDR00011

PATIENT
  Age: 44 Year
  Sex: Female

DRUGS (4)
  1. TOPIRAMATE. [Suspect]
     Active Substance: TOPIRAMATE
  2. DIPHENHYDRAMINE HYDROCHLORIDE. [Suspect]
     Active Substance: DIPHENHYDRAMINE HYDROCHLORIDE
     Dosage: UNK
  3. FLUORIDE TOOTHPASTE [Suspect]
     Active Substance: SODIUM FLUORIDE
  4. QUETIAPINE [Suspect]
     Active Substance: QUETIAPINE

REACTIONS (3)
  - Unresponsive to stimuli [Unknown]
  - Completed suicide [Fatal]
  - Toxicity to various agents [Fatal]
